FAERS Safety Report 8197265-X (Version None)
Quarter: 2012Q1

REPORT INFORMATION
  Report Type: 
  Country: None (occurrence: None)
  Receive Date: 20120309
  Receipt Date: 20120228
  Transmission Date: 20120608
  Serious: Yes (Hospitalization)
  Sender: FDA-Public Use
  Company Number: US-PFIZER INC-2012042542

PATIENT
  Sex: Female
  Weight: 67.392 kg

DRUGS (9)
  1. LEVOTHYROXINE [Concomitant]
     Indication: HYPOTHYROIDISM
     Dosage: 50 UG, 1X/DAY
     Route: 048
     Dates: start: 20110318
  2. AXITINIB [Suspect]
     Indication: RENAL CELL CARCINOMA
     Dosage: 5 MG, 2X/DAY
     Route: 048
     Dates: start: 20120208, end: 20120214
  3. CHLORHEXIDINE [Concomitant]
     Dosage: UNK
     Route: 048
     Dates: start: 20110802
  4. GABAPENTIN [Concomitant]
     Indication: PAIN
     Dosage: 300 MG, 2X/DAY
     Route: 048
     Dates: start: 20110318
  5. ACETYLSALICYLIC ACID [Concomitant]
     Indication: ATRIAL FIBRILLATION
     Dosage: 81 MG, 1X/DAY
     Route: 048
     Dates: start: 20110318
  6. AMIODARONE [Concomitant]
     Indication: ATRIAL FIBRILLATION
     Dosage: 200 MG, 1X/DAY
     Route: 048
     Dates: start: 20110318
  7. METOPROLOL [Concomitant]
     Indication: HYPERTENSION
     Dosage: 25 MG, 1X/DAY
     Route: 048
     Dates: start: 20120201
  8. PF-04856884 [Suspect]
     Indication: RENAL CELL CARCINOMA
     Dosage: 1074 MG, CYCLIC, WEEKLY
     Route: 042
     Dates: start: 20120208, end: 20120208
  9. AMLODIPINE [Concomitant]
     Indication: BLOOD PRESSURE
     Dosage: 5 MG, 1X/DAY
     Route: 048
     Dates: start: 20110608

REACTIONS (2)
  - ILEUS [None]
  - ANGINA PECTORIS [None]
